FAERS Safety Report 12212131 (Version 1)
Quarter: 2016Q1

REPORT INFORMATION
  Report Type: Spontaneous
  Country: US (occurrence: US)
  Receive Date: 20160325
  Receipt Date: 20160325
  Transmission Date: 20160526
  Serious: Yes (Other)
  Sender: FDA-Public Use
  Company Number: US-BAYER-2016-055425

PATIENT
  Age: 85 Year
  Sex: Female
  Weight: 58.5 kg

DRUGS (3)
  1. AFRIN NO DRIP SEVERE CONGESTION [Suspect]
     Active Substance: OXYMETAZOLINE HYDROCHLORIDE
     Indication: SEASONAL ALLERGY
     Dosage: 1 DF, BID
     Route: 045
     Dates: start: 2006
  2. VITAMIN E [TOCOPHEROL] [Concomitant]
  3. VITAMIN D [Concomitant]
     Active Substance: CHOLECALCIFEROL

REACTIONS (2)
  - Product use issue [None]
  - Drug dependence [None]
